FAERS Safety Report 7999802 (Version 3)
Quarter: 2017Q4

REPORT INFORMATION
  Report Type: Report from Study
  Country: SA (occurrence: SA)
  Receive Date: 20110621
  Receipt Date: 20171027
  Transmission Date: 20180321
  Serious: Yes (Death, Life-Threatening, Hospitalization, Other)
  Sender: FDA-Public Use
  Company Number: PHHO2011SA10502

PATIENT
  Age: 66 Year
  Sex: Female
  Weight: 68.7 kg

DRUGS (8)
  1. INDAPAMIDE. [Concomitant]
     Active Substance: INDAPAMIDE
     Indication: HYPERTENSION
     Dosage: 1.5 MG, QD
     Route: 048
     Dates: start: 2006, end: 20110529
  2. LIPITOR [Concomitant]
     Active Substance: ATORVASTATIN CALCIUM
     Indication: DYSLIPIDAEMIA
     Dosage: 1.5 MG, QD
     Route: 048
     Dates: start: 2001
  3. ASPIRIN. [Concomitant]
     Active Substance: ASPIRIN
     Indication: PROPHYLAXIS
     Dosage: 85 MG, QD
     Route: 048
     Dates: start: 2001
  4. HYDROCORTISONE. [Suspect]
     Active Substance: HYDROCORTISONE
     Indication: PRODUCT USED FOR UNKNOWN INDICATION
     Dosage: 1 ML, (50 MG- 1ML 96 HOURS)
     Route: 042
     Dates: start: 20100607, end: 20100610
  5. PANTOZOL [Concomitant]
     Active Substance: PANTOPRAZOLE SODIUM
     Indication: DYSLIPIDAEMIA
     Dosage: 40 MG, QD
     Route: 048
     Dates: start: 201011
  6. EVEROLIMUS. [Suspect]
     Active Substance: EVEROLIMUS
     Indication: METASTATIC RENAL CELL CARCINOMA
     Dosage: 10 MG, QD
     Route: 048
     Dates: start: 20110508, end: 20110531
  7. DEXAMETHASONE. [Suspect]
     Active Substance: DEXAMETHASONE
     Indication: PRODUCT USED FOR UNKNOWN INDICATION
     Dosage: 1 ML (4 MG), BID
     Route: 065
     Dates: start: 20110605, end: 20110613
  8. CONCOR [Concomitant]
     Active Substance: BISOPROLOL FUMARATE
     Indication: HYPERTENSION
     Dosage: 10 MG, QD
     Route: 048
     Dates: start: 2006, end: 20110529

REACTIONS (8)
  - Hypotension [Recovered/Resolved]
  - Hypernatraemia [Recovered/Resolved]
  - Hypoglycaemia [Recovered/Resolved]
  - Subcutaneous abscess [Recovered/Resolved]
  - Hypophosphataemia [Recovered/Resolved]
  - Hypomagnesaemia [Recovered/Resolved]
  - Depressed level of consciousness [Fatal]
  - Hypokalaemia [Recovered/Resolved]

NARRATIVE: CASE EVENT DATE: 20110529
